FAERS Safety Report 10022845 (Version 1)
Quarter: 2014Q1

REPORT INFORMATION
  Report Type: Spontaneous
  Country: US (occurrence: US)
  Receive Date: 20140319
  Receipt Date: 20140319
  Transmission Date: 20141002
  Serious: No
  Sender: FDA-Public Use
  Company Number: US-PFIZER INC-2014078838

PATIENT
  Age: 80 Year
  Sex: Female
  Weight: 65.31 kg

DRUGS (6)
  1. LYRICA [Suspect]
     Indication: FIBROMYALGIA
     Dosage: 50 MG, 2X/DAY
     Route: 048
     Dates: start: 201403
  2. LYRICA [Suspect]
     Indication: NEUROPATHY PERIPHERAL
  3. LYRICA [Suspect]
     Indication: NEUROPATHY PERIPHERAL
  4. LYRICA [Suspect]
     Indication: NEUROPATHY PERIPHERAL
  5. SYNTHROID [Concomitant]
     Dosage: UNK
  6. LORTAB [Concomitant]
     Dosage: UNK

REACTIONS (2)
  - Weight increased [Unknown]
  - Hypoaesthesia [Unknown]
